FAERS Safety Report 6790907-2 (Version None)
Quarter: 2010Q2

REPORT INFORMATION
  Report Type: 
  Country: None (occurrence: None)
  Receive Date: 20100624
  Receipt Date: 20100622
  Transmission Date: 20101027
  Serious: Yes (Life-Threatening, Hospitalization)
  Sender: FDA-Public Use
  Company Number: B0661794A

PATIENT
  Age: 56 Year
  Sex: Male

DRUGS (8)
  1. RANITIDINE [Suspect]
     Dosage: 300MG PER DAY
  2. INDAPAMIDE [Suspect]
  3. PERINDOPRIL [Suspect]
  4. ATORVASTATIN [Suspect]
  5. ASPIRIN [Concomitant]
     Route: 048
  6. EZETIMIBE [Concomitant]
     Route: 048
  7. GLUCOSAMINE [Concomitant]
     Route: 048
  8. NITROGLYCERIN [Concomitant]
     Route: 060

REACTIONS (2)
  - HYPOTENSION [None]
  - STEVENS-JOHNSON SYNDROME [None]
